FAERS Safety Report 5215695-2 (Version None)
Quarter: 2007Q1

REPORT INFORMATION
  Report Type: 
  Country: None (occurrence: None)
  Receive Date: 20070123
  Receipt Date: 20070115
  Transmission Date: 20070707
  Serious: Yes (Life-Threatening, Hospitalization)
  Sender: FDA-Public Use
  Company Number: BR-ROCHE-478646

PATIENT
  Age: 74 Year
  Sex: Male
  Weight: 60 kg

DRUGS (6)
  1. RIVOTRIL [Suspect]
     Indication: SEDATION
     Route: 048
     Dates: start: 20070114, end: 20070114
  2. RIVOTRIL [Suspect]
     Dosage: TAKEN AS REQUIRED.
     Route: 048
  3. ATACAND HCT [Concomitant]
  4. LABIRIN [Concomitant]
  5. CALCIUM NOS [Concomitant]
  6. GINKGO BILOBA [Concomitant]

REACTIONS (4)
  - ABDOMINAL PAIN UPPER [None]
  - COMA [None]
  - FOAMING AT MOUTH [None]
  - OVERDOSE [None]
